FAERS Safety Report 4650105-5 (Version None)
Quarter: 2005Q2

REPORT INFORMATION
  Report Type: 
  Country: None (occurrence: None)
  Receive Date: 20050428
  Receipt Date: 20050419
  Transmission Date: 20051028
  Serious: Yes (Other)
  Sender: FDA-Public Use
  Company Number: US-2004-029812

PATIENT
  Age: 55 Year
  Sex: Female
  Weight: 82.5 kg

DRUGS (9)
  1. CLIMARA [Suspect]
     Indication: HORMONE REPLACEMENT THERAPY
     Dosage: 0.05 MG, TRANSDERMAL
     Route: 062
     Dates: start: 19960416
  2. PREMARIN [Suspect]
     Indication: HORMONE REPLACEMENT THERAPY
     Dates: start: 19801002, end: 19800101
  3. CELEBREX [Concomitant]
  4. MEDROL [Concomitant]
  5. BELLERGAL-S (BELLADONNA ALKALOIDS, PHENOBARBITAL) [Concomitant]
  6. PROTONIX ^PHAMRCIA^ (PANTOPRAZOLE) [Concomitant]
  7. SKELAXIN [Concomitant]
  8. VIVELLE [Suspect]
     Indication: HORMONE REPLACEMENT THERAPY
  9. ALORA [Suspect]
     Indication: HORMONE REPLACEMENT THERAPY
     Dosage: 0.1 MG, 2X/WEEK
     Dates: start: 19980623

REACTIONS (11)
  - BREAST CANCER IN SITU [None]
  - BREAST MICROCALCIFICATION [None]
  - BREAST NECROSIS [None]
  - BREAST TENDERNESS [None]
  - CRYING [None]
  - DEPRESSION [None]
  - FIBROCYSTIC BREAST DISEASE [None]
  - HOT FLUSH [None]
  - INSOMNIA [None]
  - POLYTRAUMATISM [None]
  - SCAR [None]
